FAERS Safety Report 4694015-6 (Version None)
Quarter: 2005Q2

REPORT INFORMATION
  Report Type: 
  Country: None (occurrence: None)
  Receive Date: 20050616
  Receipt Date: 20050601
  Transmission Date: 20051028
  Serious: Yes (Other)
  Sender: FDA-Public Use
  Company Number: US014949

PATIENT
  Age: 55 Year
  Sex: Male

DRUGS (4)
  1. ACTIQ [Suspect]
     Dates: start: 20030820, end: 20030820
  2. OXYCONTIN [Suspect]
     Dates: start: 20030820
  3. AMBIEN [Suspect]
     Dates: start: 20030820
  4. ATIVAN [Suspect]
     Dates: start: 20030820

REACTIONS (3)
  - INTENTIONAL MISUSE [None]
  - LETHARGY [None]
  - SUICIDE ATTEMPT [None]
